FAERS Safety Report 15183402 (Version 1)
Quarter: 2018Q3

REPORT INFORMATION
  Report Type: Report from Study
  Country: JP (occurrence: JP)
  Receive Date: 20180723
  Receipt Date: 20180723
  Transmission Date: 20181010
  Serious: Yes (Hospitalization, Other)
  Sender: FDA-Public Use
  Company Number: JP-SA-2018SA197824

PATIENT
  Age: 66 Year
  Sex: Male

DRUGS (1)
  1. SEVELAMER HYDROCHLORIDE [Suspect]
     Active Substance: SEVELAMER HYDROCHLORIDE
     Indication: PRODUCT USED FOR UNKNOWN INDICATION
     Dosage: UNK,TABLET, 250 MG;
     Route: 048
     Dates: start: 20150602

REACTIONS (4)
  - Fluid overload [Recovering/Resolving]
  - Bronchitis [Recovering/Resolving]
  - Pneumonia [Recovering/Resolving]
  - Chronic obstructive pulmonary disease [Recovering/Resolving]

NARRATIVE: CASE EVENT DATE: 20160726
